FAERS Safety Report 8406717-6 (Version None)
Quarter: 2012Q2

REPORT INFORMATION
  Report Type: 
  Country: None (occurrence: None)
  Receive Date: 20120604
  Receipt Date: 20120531
  Transmission Date: 20120825
  Serious: Yes (Death)
  Sender: FDA-Public Use
  Company Number: PHHY2012NO046566

PATIENT
  Sex: Female

DRUGS (4)
  1. AFINITOR [Suspect]
     Indication: RENAL CANCER METASTATIC
     Dosage: UNK
     Dates: start: 20111101, end: 20111101
  2. AFINITOR [Suspect]
     Dosage: 10 MG, DAILY
     Route: 048
     Dates: start: 20120305
  3. AFINITOR [Suspect]
     Dosage: UNK
     Dates: start: 20120101, end: 20120101
  4. HYDROMORPHONE HCL [Concomitant]
     Indication: CANCER PAIN
     Route: 058

REACTIONS (3)
  - PULMONARY EMBOLISM [None]
  - ABDOMINAL PAIN [None]
  - SEPSIS [None]
